FAERS Safety Report 15123668 (Version 5)
Quarter: 2020Q4

REPORT INFORMATION
  Report Type: Spontaneous
  Country: DE (occurrence: DE)
  Receive Date: 20180710
  Receipt Date: 20201229
  Transmission Date: 20210113
  Serious: Yes (Hospitalization)
  Sender: FDA-Public Use
  Company Number: DE-DRREDDYS-GER/GER/18/0101407

PATIENT
  Age: 59 Year
  Sex: Female

DRUGS (7)
  1. MARCUMAR [Suspect]
     Active Substance: PHENPROCOUMON
     Indication: PRODUCT USED FOR UNKNOWN INDICATION
     Dosage: 3 MG, NACH INR
  2. DICLOFENAC [Suspect]
     Active Substance: DICLOFENAC
     Indication: PRODUCT USED FOR UNKNOWN INDICATION
     Dosage: 3 X 1/ WEEK
  3. DICLOFENAC [Suspect]
     Active Substance: DICLOFENAC
  4. IBUPROFEN. [Suspect]
     Active Substance: IBUPROFEN
     Dosage: 600 MG, Q3W
  5. DICLOFENAC [Suspect]
     Active Substance: DICLOFENAC
  6. IBUPROFEN. [Suspect]
     Active Substance: IBUPROFEN
     Indication: PRODUCT USED FOR UNKNOWN INDICATION
     Dosage: 600 MG 3 TIMES / WEEK
  7. MARCUMAR [Suspect]
     Active Substance: PHENPROCOUMON
     Dosage: 3 MG, ACCORDING TO INR

REACTIONS (7)
  - Anaemia [Unknown]
  - Haematochezia [Unknown]
  - Product prescribing error [Unknown]
  - General physical health deterioration [Unknown]
  - Dyspnoea [Unknown]
  - Product monitoring error [Unknown]
  - Dizziness [Unknown]
